FAERS Safety Report 5258139-7 (Version None)
Quarter: 2007Q1

REPORT INFORMATION
  Report Type: 
  Country: None (occurrence: None)
  Receive Date: 20070307
  Receipt Date: 20070228
  Transmission Date: 20070707
  Serious: Yes (Life-Threatening, Hospitalization)
  Sender: FDA-Public Use
  Company Number: US-BOEHRINGER INGELHEIM PHARMACEUTICALS, INC.-2007-BP-02295BP

PATIENT
  Sex: Female

DRUGS (16)
  1. MIRAPEX [Suspect]
     Indication: RESTLESS LEGS SYNDROME
     Route: 048
     Dates: start: 20070130, end: 20070208
  2. AMBIEN [Concomitant]
     Indication: INSOMNIA
     Route: 048
  3. LEVOTHYROXINE SODIUM [Concomitant]
     Indication: HYPOTHYROIDISM
     Route: 048
  4. PROTONIX [Concomitant]
     Indication: GASTROOESOPHAGEAL REFLUX DISEASE
     Route: 048
  5. PROTONIX [Concomitant]
     Indication: HIATUS HERNIA
  6. REGLAN [Concomitant]
     Indication: GASTROOESOPHAGEAL REFLUX DISEASE
     Route: 048
  7. ZELNORM [Concomitant]
     Indication: CONSTIPATION
     Route: 048
  8. GAS RELIEF 125 MAX ST [Concomitant]
     Route: 048
  9. LEXAPRO [Concomitant]
     Indication: DEPRESSION
     Route: 048
  10. VICODIN [Concomitant]
     Route: 048
  11. DUONEB [Concomitant]
     Indication: CHRONIC OBSTRUCTIVE PULMONARY DISEASE
  12. SENOKOT [Concomitant]
     Indication: CONSTIPATION
     Route: 048
  13. COUMADIN [Concomitant]
     Route: 048
  14. FUROSEMIDE [Concomitant]
     Indication: OEDEMA
     Route: 048
  15. POTASSIUM CHLORIDE CRYS CR [Concomitant]
     Route: 048
  16. ATENOLOL [Concomitant]
     Route: 048

REACTIONS (21)
  - ANXIETY [None]
  - ARTHRALGIA [None]
  - ASTHENIA [None]
  - BRONCHITIS [None]
  - BRONCHOSPASM [None]
  - CHRONIC OBSTRUCTIVE PULMONARY DISEASE [None]
  - COUGH [None]
  - DEPRESSION [None]
  - DYSPHONIA [None]
  - DYSPNOEA [None]
  - FATIGUE [None]
  - HIP FRACTURE [None]
  - INCREASED TENDENCY TO BRUISE [None]
  - INSOMNIA [None]
  - JOINT STIFFNESS [None]
  - JOINT SWELLING [None]
  - OEDEMA PERIPHERAL [None]
  - PNEUMONIA [None]
  - TACHYPNOEA [None]
  - TRACHEITIS [None]
  - WHEEZING [None]
